FAERS Safety Report 13717068 (Version 1)
Quarter: 2017Q3

REPORT INFORMATION
  Report Type: Spontaneous
  Country: US (occurrence: US)
  Receive Date: 20170704
  Receipt Date: 20170704
  Transmission Date: 20171127
  Serious: No
  Sender: FDA-Public Use
  Company Number: None

PATIENT
  Age: 6 Year
  Sex: Female
  Weight: 22.05 kg

DRUGS (1)
  1. CEFIDNIR 300MG [Suspect]
     Active Substance: CEFDINIR
     Indication: PHARYNGITIS STREPTOCOCCAL
     Dosage: ?          QUANTITY:6 ML;?
     Route: 048

REACTIONS (1)
  - Urticaria [None]

NARRATIVE: CASE EVENT DATE: 20170704
